FAERS Safety Report 8622193-2 (Version None)
Quarter: 2012Q3

REPORT INFORMATION
  Report Type: 
  Country: None (occurrence: None)
  Receive Date: 20120826
  Receipt Date: 20120822
  Transmission Date: 20120928
  Serious: Yes (Hospitalization)
  Sender: FDA-Public Use
  Company Number: GR-AMGEN-GRCSP2012053273

PATIENT
  Age: 56 Year
  Sex: Female

DRUGS (4)
  1. PROLIA [Suspect]
     Indication: OSTEOPOROSIS
     Dosage: 60 MG, Q6MO
     Route: 065
     Dates: start: 20110727
  2. LEPUR [Concomitant]
     Dosage: 40 MG, UNK
     Dates: start: 20100101
  3. THYRO [Concomitant]
     Dosage: 0.1 MG, UNK
  4. CARVEDILOL [Concomitant]
     Dosage: 6.25 MG, UNK

REACTIONS (7)
  - CHEST PAIN [None]
  - MUSCULAR WEAKNESS [None]
  - FATIGUE [None]
  - TREMOR [None]
  - PANIC ATTACK [None]
  - ATRIAL FIBRILLATION [None]
  - MUSCULOSKELETAL PAIN [None]
